FAERS Safety Report 6014296-6 (Version None)
Quarter: 2008Q4

REPORT INFORMATION
  Report Type: 
  Country: None (occurrence: None)
  Receive Date: 20081219
  Receipt Date: 20080331
  Transmission Date: 20090506
  Serious: No
  Sender: FDA-Public Use
  Company Number: A0718339A

PATIENT
  Age: 52 Year
  Sex: Male

DRUGS (2)
  1. AVODART [Suspect]
     Indication: BENIGN PROSTATIC HYPERPLASIA
     Dosage: .5MG PER DAY
     Route: 048
     Dates: end: 20080327
  2. NO CONCURRENT MEDICATION [Concomitant]

REACTIONS (5)
  - DRY EYE [None]
  - HUNGER [None]
  - THIRST [None]
  - VISION BLURRED [None]
  - WEIGHT INCREASED [None]
